FAERS Safety Report 21552554 (Version 2)
Quarter: 2023Q2

REPORT INFORMATION
  Report Type: Spontaneous
  Country: BY (occurrence: BY)
  Receive Date: 20221104
  Receipt Date: 20230419
  Transmission Date: 20230722
  Serious: Yes (Other)
  Sender: FDA-Public Use
  Company Number: BY-JNJFOC-20221056197

PATIENT
  Age: 58 Year
  Sex: Male
  Weight: 49.5 kg

DRUGS (5)
  1. SIRTURO [Suspect]
     Active Substance: BEDAQUILINE FUMARATE
     Indication: Tuberculosis
     Dosage: DRUG INTERRUPTED FROM 27-OCT-2022 TO 20-NOV-2022
     Route: 048
     Dates: start: 20220916
  2. PRETOMANID [Suspect]
     Active Substance: PRETOMANID
     Indication: Tuberculosis
     Dosage: DRUG INTERRUPTED FROM 27-OCT-2022 TO 20-NOV-2022
     Route: 048
     Dates: start: 20220916
  3. LINEZOLID [Suspect]
     Active Substance: LINEZOLID
     Indication: Tuberculosis
     Dosage: DRUG INTERRUPTED FROM 27-OCT-2022 TO 20-NOV-2022
     Route: 048
     Dates: start: 20220916
  4. MOXIFLOXACIN [Suspect]
     Active Substance: MOXIFLOXACIN
     Indication: Tuberculosis
     Dosage: DRUG INTERRUPTED FROM 27-OCT-2022 TO 20-NOV-2022
     Route: 048
     Dates: start: 20220916
  5. PYRIDOXINE [Concomitant]
     Active Substance: PYRIDOXINE
     Indication: Prophylaxis
     Dates: start: 20220916

REACTIONS (5)
  - Pancreatitis [Recovered/Resolved]
  - Nephroptosis [Unknown]
  - Renal cyst [Unknown]
  - Liver disorder [Unknown]
  - Gallbladder polyp [Unknown]

NARRATIVE: CASE EVENT DATE: 20221012
